FAERS Safety Report 12416619 (Version 1)
Quarter: 2016Q2

REPORT INFORMATION
  Report Type: Spontaneous
  Country: CN (occurrence: CN)
  Receive Date: 20160530
  Receipt Date: 20160530
  Transmission Date: 20160815
  Serious: Yes (Other)
  Sender: FDA-Public Use
  Company Number: CN-JNJFOC-20150711893

PATIENT
  Age: 61 Year
  Sex: Female

DRUGS (7)
  1. SPORANOX [Suspect]
     Active Substance: ITRACONAZOLE
     Indication: GENITAL INFECTION FUNGAL
     Route: 048
     Dates: start: 20150703, end: 20150705
  2. SPORANOX [Suspect]
     Active Substance: ITRACONAZOLE
     Indication: TINEA PEDIS
     Route: 048
  3. SPORANOX [Suspect]
     Active Substance: ITRACONAZOLE
     Indication: ECZEMA
     Route: 048
  4. NIFEDIPINE. [Concomitant]
     Active Substance: NIFEDIPINE
     Dosage: 1 TABLET
     Route: 065
  5. SPORANOX [Suspect]
     Active Substance: ITRACONAZOLE
     Indication: GENITAL INFECTION FUNGAL
     Route: 048
  6. SPORANOX [Suspect]
     Active Substance: ITRACONAZOLE
     Indication: ECZEMA
     Route: 048
     Dates: start: 20150703, end: 20150705
  7. SPORANOX [Suspect]
     Active Substance: ITRACONAZOLE
     Indication: TINEA PEDIS
     Route: 048
     Dates: start: 20150703, end: 20150705

REACTIONS (8)
  - Pruritus [Unknown]
  - Nausea [Recovering/Resolving]
  - Tremor [Unknown]
  - Oedema peripheral [Not Recovered/Not Resolved]
  - Joint swelling [Unknown]
  - Palpitations [Unknown]
  - Infection protozoal [Unknown]
  - Blood pressure decreased [Unknown]

NARRATIVE: CASE EVENT DATE: 20150703
